FAERS Safety Report 16369849 (Version 1)
Quarter: 2019Q2

REPORT INFORMATION
  Report Type: Spontaneous
  Country: IL (occurrence: IL)
  Receive Date: 20190530
  Receipt Date: 20190530
  Transmission Date: 20190711
  Serious: Yes (Other)
  Sender: FDA-Public Use
  Company Number: IL-TEVA-2019-IL-1055361

PATIENT
  Age: 15 Year
  Sex: Male

DRUGS (1)
  1. DEXTROAMPHET SACCHARAT, AMPHET ASPARTATE, DEXTROAMPHET SULFATE AND AMPHET SULFAT [Suspect]
     Active Substance: AMPHETAMINE ASPARTATE\AMPHETAMINE SULFATE\DEXTROAMPHETAMINE SACCHARATE\DEXTROAMPHETAMINE SULFATE
     Dosage: FOR THE PAST YEAR
     Route: 065

REACTIONS (6)
  - Palpitations [Unknown]
  - Toxicity to various agents [Unknown]
  - Dyspnoea [Unknown]
  - Pyrexia [Unknown]
  - Depressed level of consciousness [Unknown]
  - Heart rate increased [Unknown]
